FAERS Safety Report 8300723-8 (Version None)
Quarter: 2012Q1

REPORT INFORMATION
  Report Type: 
  Country: None (occurrence: None)
  Receive Date: 20120326
  Receipt Date: 20110725
  Transmission Date: 20120608
  Serious: Yes (Other)
  Sender: FDA-Public Use
  Company Number: PHHY2011US58798

PATIENT
  Age: 57 Year
  Sex: Male
  Weight: 106 kg

DRUGS (9)
  1. TASIGNA [Suspect]
     Indication: CHRONIC MYELOID LEUKAEMIA
     Dosage: SEE IMAGE
     Route: 048
     Dates: start: 20110608, end: 20110614
  2. TASIGNA [Suspect]
     Indication: CHRONIC MYELOID LEUKAEMIA
     Dosage: SEE IMAGE
     Route: 048
     Dates: start: 20110615
  3. TASIGNA [Suspect]
     Indication: CHRONIC MYELOID LEUKAEMIA
     Dosage: SEE IMAGE
     Route: 048
     Dates: start: 20110406, end: 20110504
  4. CARISOPRODOL (CARISOPRODOL) [Concomitant]
  5. HYDROCHLOROTHIAZIDE [Concomitant]
  6. LOPRESSOR [Concomitant]
  7. AVINZA [Concomitant]
  8. CELEXA [Concomitant]
  9. ALLOPURINOL [Concomitant]

REACTIONS (1)
  - WHITE BLOOD CELL COUNT DECREASED [None]
